FAERS Safety Report 8241674-7 (Version None)
Quarter: 2012Q1

REPORT INFORMATION
  Report Type: 
  Country: None (occurrence: None)
  Receive Date: 20120328
  Receipt Date: 20120321
  Transmission Date: 20120608
  Serious: Yes (Other)
  Sender: FDA-Public Use
  Company Number: US-ABBOTT-12P-163-0900807-00

PATIENT
  Sex: Male
  Weight: 104.42 kg

DRUGS (5)
  1. HUMIRA [Suspect]
     Indication: ANKYLOSING SPONDYLITIS
     Dates: start: 20070101, end: 20101128
  2. HUMIRA [Suspect]
     Dates: end: 20110501
  3. HUMIRA [Suspect]
     Dates: start: 20111101
  4. HYDROCODONE [Concomitant]
     Indication: PAIN
  5. UNKNOWN MEDICATION [Concomitant]
     Indication: BLOOD PRESSURE

REACTIONS (9)
  - INTERVERTEBRAL DISC DEGENERATION [None]
  - OSTEOARTHRITIS [None]
  - ANKYLOSING SPONDYLITIS [None]
  - LIPOMATOSIS [None]
  - SPINAL OSTEOARTHRITIS [None]
  - INTERVERTEBRAL DISC PROTRUSION [None]
  - INFLUENZA LIKE ILLNESS [None]
  - ARTHRALGIA [None]
  - SPINAL COLUMN STENOSIS [None]
